FAERS Safety Report 17204195 (Version 1)
Quarter: 2019Q4

REPORT INFORMATION
  Report Type: Spontaneous
  Country: US (occurrence: US)
  Receive Date: 20191226
  Receipt Date: 20191226
  Transmission Date: 20200122
  Serious: No
  Sender: FDA-Public Use
  Company Number: US-IGSA-SR10009612

PATIENT
  Age: 12 Year
  Sex: Male
  Weight: 24 kg

DRUGS (7)
  1. GAMUNEX-C [Suspect]
     Active Substance: HUMAN IMMUNOGLOBULIN G
     Indication: HYPOGAMMAGLOBULINAEMIA
     Dosage: 10 G, Q.3WK.
     Route: 042
     Dates: start: 20191031
  2. GAMUNEX-C [Suspect]
     Active Substance: HUMAN IMMUNOGLOBULIN G
     Indication: COMBINED IMMUNODEFICIENCY
     Dosage: 10 G, Q.3WK.
     Route: 042
     Dates: start: 20080625
  3. LMX                                /00033401/ [Concomitant]
     Indication: PREMEDICATION
     Dosage: UNK
     Route: 061
     Dates: start: 20191031
  4. DIPHENHYDRAMINE. [Concomitant]
     Active Substance: DIPHENHYDRAMINE
     Dosage: UNK
  5. APAP [Concomitant]
     Active Substance: ACETAMINOPHEN
  6. HEPARIN [Concomitant]
     Active Substance: HEPARIN SODIUM
  7. SODIUM CHLORIDE. [Concomitant]
     Active Substance: SODIUM CHLORIDE

REACTIONS (1)
  - Urticaria [Recovered/Resolved]

NARRATIVE: CASE EVENT DATE: 20191031
